FAERS Safety Report 21391454 (Version 6)
Quarter: 2022Q4

REPORT INFORMATION
  Report Type: Spontaneous
  Country: CA (occurrence: CA)
  Receive Date: 20220929
  Receipt Date: 20221210
  Transmission Date: 20230112
  Serious: Yes (Other)
  Sender: FDA-Public Use
  Company Number: CA-CELLTRION INC.-2021CA019256

PATIENT

DRUGS (13)
  1. INFLECTRA [Suspect]
     Active Substance: INFLIXIMAB-DYYB
     Indication: Crohn^s disease
     Dosage: 318 MG INDUCTION AT 0,2,6 WEEKS AND THEN EVERY 8 WEEK MAINTENANCE
     Route: 042
     Dates: start: 20210511, end: 20220401
  2. INFLECTRA [Suspect]
     Active Substance: INFLIXIMAB-DYYB
     Dosage: 318 MG INDUCTION AT 0,2,6 WEEKS AND THEN EVERY 8 WEEK MAINTENANCE
     Route: 042
     Dates: start: 20211015
  3. INFLECTRA [Suspect]
     Active Substance: INFLIXIMAB-DYYB
     Dosage: 318 MG INDUCTION AT 0,2,6 WEEKS AND THEN EVERY 8 WEEK MAINTENANCE
     Route: 042
     Dates: start: 20211210
  4. INFLECTRA [Suspect]
     Active Substance: INFLIXIMAB-DYYB
     Dosage: 318 MG INDUCTION AT 0,2,6 WEEKS AND THEN EVERY 8 WEEK MAINTENANCE
     Route: 042
     Dates: start: 20220204
  5. INFLECTRA [Suspect]
     Active Substance: INFLIXIMAB-DYYB
     Dosage: 318 MG, Q 0,2,6 WEEKS AND THEN EVERY 8 WEEK
     Route: 042
     Dates: start: 20220401
  6. INFLECTRA [Suspect]
     Active Substance: INFLIXIMAB-DYYB
     Dosage: 5 MG/KG EVERY 8 WEEK
     Route: 042
     Dates: start: 20220526
  7. INFLECTRA [Suspect]
     Active Substance: INFLIXIMAB-DYYB
     Dosage: 318 MG, Q 0,2,6 WEEKS AND THEN EVERY 8 WEEK
     Route: 042
     Dates: start: 20220526
  8. INFLECTRA [Suspect]
     Active Substance: INFLIXIMAB-DYYB
     Dosage: 318 MG, Q 0,2,6 WEEKS AND THEN EVERY 8 WEEK
     Route: 042
     Dates: start: 20220526
  9. INFLECTRA [Suspect]
     Active Substance: INFLIXIMAB-DYYB
     Dosage: 318 MG, Q 0,2,6 WEEKS AND THEN EVERY 8 WEEK
     Route: 042
     Dates: start: 20220721
  10. INFLECTRA [Suspect]
     Active Substance: INFLIXIMAB-DYYB
     Dosage: 318 MG, Q 0,2,6 WEEKS AND THEN EVERY 8 WEEKS
     Route: 042
     Dates: start: 20220916
  11. INFLECTRA [Suspect]
     Active Substance: INFLIXIMAB-DYYB
     Dosage: 5 MG/KG, EVERY 8 WEEKS
     Route: 042
     Dates: start: 20221129
  12. FOLIC ACID [Concomitant]
     Active Substance: FOLIC ACID
     Dosage: 5 MG
  13. METHOTREXATE [Concomitant]
     Active Substance: METHOTREXATE
     Dosage: 1 DF, WEEKLY
     Route: 065
     Dates: start: 202009

REACTIONS (13)
  - Endodontic procedure [Recovered/Resolved]
  - Cellulitis [Recovered/Resolved]
  - Skin irritation [Not Recovered/Not Resolved]
  - Carpal tunnel syndrome [Unknown]
  - Osteoarthritis [Unknown]
  - Arthropod sting [Recovered/Resolved]
  - Allergy to arthropod sting [Recovered/Resolved]
  - Influenza like illness [Recovering/Resolving]
  - Taste disorder [Recovered/Resolved]
  - Respiratory tract infection viral [Recovered/Resolved]
  - Arthralgia [Not Recovered/Not Resolved]
  - Off label use [Unknown]
  - Intentional product use issue [Unknown]

NARRATIVE: CASE EVENT DATE: 20211210
